FAERS Safety Report 11242553 (Version 2)
Quarter: 2015Q3

REPORT INFORMATION
  Report Type: Report from Study
  Country: CA (occurrence: CA)
  Receive Date: 20150707
  Receipt Date: 20150731
  Transmission Date: 20151125
  Serious: Yes (Hospitalization, Other)
  Sender: FDA-Public Use
  Company Number: CA-ABBVIE-15K-028-1419129-00

PATIENT
  Age: 19 Year
  Sex: Female
  Weight: 59.02 kg

DRUGS (2)
  1. HUMIRA [Suspect]
     Active Substance: ADALIMUMAB
     Route: 058
     Dates: start: 2014
  2. HUMIRA [Suspect]
     Active Substance: ADALIMUMAB
     Indication: CROHN^S DISEASE
     Route: 058
     Dates: start: 20101216

REACTIONS (12)
  - Abdominal pain [Recovering/Resolving]
  - Platelet count increased [Unknown]
  - Monocyte count increased [Unknown]
  - Diarrhoea [Unknown]
  - Abdominal distension [Unknown]
  - Postoperative adhesion [Not Recovered/Not Resolved]
  - Intestinal anastomosis complication [Recovered/Resolved]
  - Anxiety [Unknown]
  - Small intestinal obstruction [Recovered/Resolved]
  - Stress [Unknown]
  - Iron deficiency anaemia [Recovered/Resolved]
  - Irritable bowel syndrome [Unknown]

NARRATIVE: CASE EVENT DATE: 20130528
